FAERS Safety Report 20967457 (Version 1)
Quarter: 2022Q2

REPORT INFORMATION
  Report Type: Spontaneous
  Country: US (occurrence: None)
  Receive Date: 20220616
  Receipt Date: 20220616
  Transmission Date: 20220721
  Serious: Yes (Life-Threatening, Disabling, Other)
  Sender: FDA-Public Use
  Company Number: None

PATIENT
  Age: 34 Year
  Sex: Female
  Weight: 72 kg

DRUGS (23)
  1. DEXTROAMPHET SACCHARAT, AMPHET ASPARTATE, DEXTROAMPHET SULFATE AND AMP [Suspect]
     Active Substance: AMPHETAMINE ASPARTATE\AMPHETAMINE SULFATE\DEXTROAMPHETAMINE SACCHARATE\DEXTROAMPHETAMINE SULFATE
     Indication: Attention deficit hyperactivity disorder
     Dosage: FREQUENCY : DAILY;?
     Route: 048
     Dates: start: 20220513, end: 20220514
  2. SPIRONOLACTONE [Concomitant]
     Active Substance: SPIRONOLACTONE
  3. ARMOUR THYROID [Concomitant]
     Active Substance: THYROID, PORCINE
  4. ADDERALL XR [Concomitant]
     Active Substance: AMPHETAMINE ASPARTATE\AMPHETAMINE SULFATE\DEXTROAMPHETAMINE SACCHARATE\DEXTROAMPHETAMINE SULFATE
  5. ADDERALL [Concomitant]
     Active Substance: AMPHETAMINE ASPARTATE\AMPHETAMINE SULFATE\DEXTROAMPHETAMINE SACCHARATE\DEXTROAMPHETAMINE SULFATE
  6. CSL #3 Prescription Probiotic [Concomitant]
  7. FLUCONAZOLE [Concomitant]
     Active Substance: FLUCONAZOLE
  8. PROGESTERONE [Concomitant]
     Active Substance: PROGESTERONE
  9. Kirkland multivitamin with iron [Concomitant]
  10. ZINC [Concomitant]
     Active Substance: ZINC
  11. VITAMIN C [Concomitant]
     Active Substance: ASCORBIC ACID
  12. VITAMIN D3 [Concomitant]
     Active Substance: CHOLECALCIFEROL
  13. VITAMIN B12 [Concomitant]
     Active Substance: CYANOCOBALAMIN
  14. BIOTIN [Concomitant]
     Active Substance: BIOTIN
  15. LEVOMEFOLATE CALCIUM [Concomitant]
     Active Substance: LEVOMEFOLATE CALCIUM
  16. MAGNESIUM [Concomitant]
     Active Substance: MAGNESIUM
  17. GABA [Concomitant]
     Active Substance: HOMEOPATHICS
  18. GLYCINE [Concomitant]
     Active Substance: GLYCINE
  19. Citrus Bioflavonoid Complex [Concomitant]
  20. RUTIN [Concomitant]
     Active Substance: RUTIN
  21. Diindolylmethane (DIM) [Concomitant]
  22. NAC [Concomitant]
  23. Calcium-d-Gluconate [Concomitant]

REACTIONS (6)
  - Heart rate increased [None]
  - Hyperhidrosis [None]
  - Headache [None]
  - Pain [None]
  - Depression [None]
  - Product quality issue [None]

NARRATIVE: CASE EVENT DATE: 20220513
